FAERS Safety Report 7652216-9 (Version None)
Quarter: 2011Q3

REPORT INFORMATION
  Report Type: 
  Country: None (occurrence: None)
  Receive Date: 20110803
  Receipt Date: 20110722
  Transmission Date: 20111222
  Serious: Yes (Hospitalization)
  Sender: FDA-Public Use
  Company Number: FR-JNJFOC-20110710994

PATIENT
  Age: 36 Year
  Sex: Male

DRUGS (2)
  1. REMICADE [Suspect]
     Indication: ANKYLOSING SPONDYLITIS
     Route: 042
     Dates: start: 20030101, end: 20101201
  2. KETOPROFEN [Concomitant]
     Indication: ANKYLOSING SPONDYLITIS
     Route: 048

REACTIONS (2)
  - SALMONELLA SEPSIS [None]
  - ARTHRITIS BACTERIAL [None]
